FAERS Safety Report 5168150-2 (Version None)
Quarter: 2006Q4

REPORT INFORMATION
  Report Type: 
  Country: None (occurrence: None)
  Receive Date: 20061208
  Receipt Date: 20061128
  Transmission Date: 20070319
  Serious: Yes (Hospitalization)
  Sender: FDA-Public Use
  Company Number: US-PURDUE-USA_2006_0025811

PATIENT
  Age: 49 Year
  Sex: Female

DRUGS (2)
  1. OXYCODONE HYDROCHLORIDE [Suspect]
     Indication: ABDOMINAL PAIN
     Dosage: 30 MG, UNK
     Route: 048
     Dates: start: 20061001, end: 20061001
  2. AVINZA [Concomitant]
     Indication: DRUG USE FOR UNKNOWN INDICATION
     Dosage: UNK MG, SEE TEXT

REACTIONS (2)
  - CONSTIPATION [None]
  - FAECALOMA [None]
